FAERS Safety Report 6130922-5 (Version None)
Quarter: 2009Q1

REPORT INFORMATION
  Report Type: 
  Country: None (occurrence: None)
  Receive Date: 20090325
  Receipt Date: 20090319
  Transmission Date: 20090719
  Serious: Yes (Hospitalization)
  Sender: FDA-Public Use
  Company Number: GB-ASTRAZENECA-2009GB00740

PATIENT
  Age: 89 Year
  Sex: Female

DRUGS (13)
  1. OMEPRAZOLE [Suspect]
     Indication: GASTROINTESTINAL HAEMORRHAGE
     Route: 048
     Dates: start: 20090217, end: 20090226
  2. ACETYLCYSTEINE [Concomitant]
     Indication: SCAN WITH CONTRAST
     Dosage: 4 X 600 MG
     Route: 048
  3. CALCICHEW D3 [Concomitant]
  4. CODEINE SUL TAB [Concomitant]
  5. DOCUSATE SODIUM [Concomitant]
  6. LACTULOSE [Concomitant]
  7. LEVOTHYROXINE SODIUM [Concomitant]
  8. MIRTAZAPINE [Concomitant]
  9. PARACETAMOL [Concomitant]
  10. PREDNISOLONE [Concomitant]
  11. RISEDRONATE SODIUM [Concomitant]
  12. SENNA [Concomitant]
  13. VENLAFAXINE HCL [Concomitant]

REACTIONS (1)
  - HEPATIC ENZYME ABNORMAL [None]
